FAERS Safety Report 9872303 (Version 1)
Quarter: 2014Q1

REPORT INFORMATION
  Report Type: Spontaneous
  Country: US (occurrence: US)
  Receive Date: 20140205
  Receipt Date: 20140205
  Transmission Date: 20141002
  Serious: No
  Sender: FDA-Public Use
  Company Number: US-009507513-1401USA012257

PATIENT
  Age: 9 Year
  Sex: Female

DRUGS (3)
  1. DULERA [Suspect]
     Indication: ASTHMA
     Dosage: INHALE 2 PUFFS IN CHAMBER, TWICE A DAY (IN THE MORNING AND EVENING)
     Route: 055
     Dates: start: 2013
  2. MOMETASONE FUROATE [Concomitant]
     Route: 045
  3. LANSOPRAZOLE [Concomitant]

REACTIONS (6)
  - Influenza [Recovered/Resolved]
  - Wheezing [Recovered/Resolved]
  - Off label use [Unknown]
  - Incorrect dose administered [Unknown]
  - Product quality issue [Unknown]
  - Drug administered to patient of inappropriate age [Unknown]
